FAERS Safety Report 25019485 (Version 4)
Quarter: 2025Q1

REPORT INFORMATION
  Report Type: Spontaneous
  Country: CA (occurrence: CA)
  Receive Date: 20250227
  Receipt Date: 20250326
  Transmission Date: 20250408
  Serious: Yes (Death, Life-Threatening, Hospitalization, Disabling, Congenital Anomaly, Other)
  Sender: SANDOZ
  Company Number: CA-002147023-NVSC2025CA030518

PATIENT
  Age: 43 Year
  Sex: Female
  Weight: 96 kg

DRUGS (111)
  1. ADALIMUMAB [Suspect]
     Active Substance: ADALIMUMAB
     Route: 059
  2. ADALIMUMAB [Suspect]
     Active Substance: ADALIMUMAB
     Route: 059
  3. ADALIMUMAB [Suspect]
     Active Substance: ADALIMUMAB
     Route: 057
  4. ADALIMUMAB [Suspect]
     Active Substance: ADALIMUMAB
     Route: 065
  5. ADALIMUMAB [Suspect]
     Active Substance: ADALIMUMAB
     Indication: Rheumatoid arthritis
     Route: 059
  6. ALENDRONIC ACID [Suspect]
     Active Substance: ALENDRONIC ACID
     Indication: Product used for unknown indication
     Route: 048
  7. ALENDRONIC ACID [Suspect]
     Active Substance: ALENDRONIC ACID
     Indication: Rheumatoid arthritis
  8. ACETAMINOPHEN\TRAMADOL HYDROCHLORIDE [Suspect]
     Active Substance: ACETAMINOPHEN\TRAMADOL HYDROCHLORIDE
     Indication: Product used for unknown indication
     Route: 065
  9. AIMOVIG [Suspect]
     Active Substance: ERENUMAB-AOOE
     Route: 059
  10. AIMOVIG [Suspect]
     Active Substance: ERENUMAB-AOOE
     Indication: Migraine
     Route: 059
  11. AIMOVIG [Suspect]
     Active Substance: ERENUMAB-AOOE
     Indication: Rheumatoid arthritis
     Route: 065
  12. AIMOVIG [Suspect]
     Active Substance: ERENUMAB-AOOE
     Route: 065
  13. AIMOVIG [Suspect]
     Active Substance: ERENUMAB-AOOE
     Route: 065
  14. APREMILAST [Suspect]
     Active Substance: APREMILAST
     Indication: Rheumatoid arthritis
     Route: 048
  15. APREMILAST [Suspect]
     Active Substance: APREMILAST
     Indication: Product used for unknown indication
  16. CANDESARTAN [Suspect]
     Active Substance: CANDESARTAN
     Indication: Rheumatoid arthritis
     Route: 048
  17. CANDESARTAN [Suspect]
     Active Substance: CANDESARTAN
     Indication: Migraine
  18. CALCIUM [Suspect]
     Active Substance: CALCIUM
     Indication: Product used for unknown indication
     Route: 065
  19. CALCIUM CARBONATE [Suspect]
     Active Substance: CALCIUM CARBONATE
     Indication: Product used for unknown indication
     Route: 065
  20. CERTOLIZUMAB PEGOL [Suspect]
     Active Substance: CERTOLIZUMAB PEGOL
     Indication: Psoriasis
     Route: 065
  21. CETIRIZINE HYDROCHLORIDE [Suspect]
     Active Substance: CETIRIZINE HYDROCHLORIDE
     Dosage: 10 MG, QD
     Route: 065
  22. CETIRIZINE HYDROCHLORIDE [Suspect]
     Active Substance: CETIRIZINE HYDROCHLORIDE
     Indication: Rheumatoid arthritis
     Route: 065
  23. CETIRIZINE HYDROCHLORIDE [Suspect]
     Active Substance: CETIRIZINE HYDROCHLORIDE
     Route: 065
  24. CHLORHEXIDINE GLUCONATE [Suspect]
     Active Substance: CHLORHEXIDINE GLUCONATE
     Indication: Product used for unknown indication
     Route: 065
  25. COSENTYX [Suspect]
     Active Substance: SECUKINUMAB
     Indication: Psoriatic arthropathy
     Route: 065
  26. COSENTYX [Suspect]
     Active Substance: SECUKINUMAB
     Indication: Arthropathy
  27. COSENTYX [Suspect]
     Active Substance: SECUKINUMAB
     Indication: Psoriasis
  28. CYANOCOBALAMIN [Suspect]
     Active Substance: CYANOCOBALAMIN
     Indication: Product used for unknown indication
     Route: 065
  29. DICLOFENAC [Suspect]
     Active Substance: DICLOFENAC
     Indication: Product used for unknown indication
     Route: 065
  30. DICLOFENAC [Suspect]
     Active Substance: DICLOFENAC
     Indication: Rheumatoid arthritis
  31. DICLOFENAC POTASSIUM [Suspect]
     Active Substance: DICLOFENAC POTASSIUM
     Indication: Product used for unknown indication
     Dosage: 20 MG, QD
     Route: 048
  32. DICLOFENAC SODIUM [Suspect]
     Active Substance: DICLOFENAC SODIUM
     Indication: Rheumatoid arthritis
     Dosage: 10 MG, QD
     Route: 048
  33. DICLOFENAC DIETHYLAMINE [Suspect]
     Active Substance: DICLOFENAC DIETHYLAMINE
     Indication: Product used for unknown indication
     Route: 065
  34. DOMPERIDONE MALEATE [Suspect]
     Active Substance: DOMPERIDONE MALEATE
     Indication: Product used for unknown indication
     Route: 065
  35. DOXYCYCLINE HYCLATE [Suspect]
     Active Substance: DOXYCYCLINE HYCLATE
     Indication: Product used for unknown indication
     Route: 065
  36. ERELZI [Suspect]
     Active Substance: ETANERCEPT-SZZS
     Indication: Product used for unknown indication
     Route: 059
  37. ETANERCEPT [Suspect]
     Active Substance: ETANERCEPT
     Indication: Rheumatoid arthritis
     Route: 059
  38. ERENUMAB-AOOE [Suspect]
     Active Substance: ERENUMAB-AOOE
     Indication: Product used for unknown indication
     Dosage: 2,DF, 2 DOSAGE FORM, QD
     Route: 065
  39. GLUCOSAMINE [Suspect]
     Active Substance: GLUCOSAMINE
     Indication: Rheumatoid arthritis
     Route: 065
  40. GOLD [Suspect]
     Active Substance: GOLD
     Indication: Product used for unknown indication
     Route: 065
  41. GOLIMUMAB [Suspect]
     Active Substance: GOLIMUMAB
     Indication: Prostatic specific antigen
     Route: 059
  42. GOLIMUMAB [Suspect]
     Active Substance: GOLIMUMAB
     Indication: Rheumatoid arthritis
     Route: 065
  43. HUMIRA [Suspect]
     Active Substance: ADALIMUMAB
     Route: 048
  44. HUMIRA [Suspect]
     Active Substance: ADALIMUMAB
     Indication: Rheumatoid arthritis
     Route: 059
  45. HYDROCORTISONE BUTYRATE [Suspect]
     Active Substance: HYDROCORTISONE BUTYRATE
     Dosage: 1 DOSAGE FORM, QD
     Route: 048
  46. HYDROCORTISONE BUTYRATE [Suspect]
     Active Substance: HYDROCORTISONE BUTYRATE
     Dosage: 1 DOSAGE FORM, QD
     Route: 065
  47. HYDROCORTISONE BUTYRATE [Suspect]
     Active Substance: HYDROCORTISONE BUTYRATE
     Dosage: 40 MG, QD
     Route: 048
  48. HYDROCORTISONE BUTYRATE [Suspect]
     Active Substance: HYDROCORTISONE BUTYRATE
     Dosage: 400 MG, QD
     Route: 065
  49. HYDROCORTISONE BUTYRATE [Suspect]
     Active Substance: HYDROCORTISONE BUTYRATE
     Indication: Rheumatoid arthritis
     Route: 065
  50. HYDROXYCHLOROQUINE SULFATE [Suspect]
     Active Substance: HYDROXYCHLOROQUINE SULFATE
     Dosage: 1 DOSAGE FORM, QD
     Route: 048
  51. HYDROXYCHLOROQUINE SULFATE [Suspect]
     Active Substance: HYDROXYCHLOROQUINE SULFATE
     Dosage: 1 DOSAGE FORM, QD
     Route: 065
  52. HYDROXYCHLOROQUINE SULFATE [Suspect]
     Active Substance: HYDROXYCHLOROQUINE SULFATE
     Dosage: 40 MG, QD
     Route: 048
  53. HYDROXYCHLOROQUINE SULFATE [Suspect]
     Active Substance: HYDROXYCHLOROQUINE SULFATE
     Dosage: 400 MG, QD
     Route: 065
  54. HYDROXYCHLOROQUINE SULFATE [Suspect]
     Active Substance: HYDROXYCHLOROQUINE SULFATE
     Indication: Rheumatoid arthritis
     Route: 065
  55. KEVZARA [Suspect]
     Active Substance: SARILUMAB
     Indication: Rheumatoid arthritis
     Route: 065
  56. LEFLUNOMIDE [Suspect]
     Active Substance: LEFLUNOMIDE
     Dosage: 10 MG, QD
     Route: 048
  57. LEFLUNOMIDE [Suspect]
     Active Substance: LEFLUNOMIDE
     Indication: Rheumatoid arthritis
     Dosage: 20 MG, QD
     Route: 048
  58. LAMICTAL [Suspect]
     Active Substance: LAMOTRIGINE
     Indication: Product used for unknown indication
     Route: 065
  59. METFORMIN HYDROCHLORIDE [Suspect]
     Active Substance: METFORMIN HYDROCHLORIDE
     Indication: Migraine
     Route: 065
  60. METHOTREXATE [Suspect]
     Active Substance: METHOTREXATE
     Indication: Prostatic specific antigen
     Route: 030
  61. MAGNESIUM [Suspect]
     Active Substance: MAGNESIUM
     Indication: Product used for unknown indication
     Route: 065
  62. MEGLUMINE [Suspect]
     Active Substance: MEGLUMINE
     Indication: Product used for unknown indication
     Route: 065
  63. METHYLPREDNISOLONE SODIUM SUCCINATE [Suspect]
     Active Substance: METHYLPREDNISOLONE SODIUM SUCCINATE
     Indication: Product used for unknown indication
     Route: 065
  64. MINOCYCLINE HYDROCHLORIDE [Suspect]
     Active Substance: MINOCYCLINE HYDROCHLORIDE
     Indication: Rheumatoid arthritis
     Route: 065
  65. MYOCHRYSINE [Suspect]
     Active Substance: GOLD SODIUM THIOMALATE
     Indication: Product used for unknown indication
     Route: 030
  66. NAPROXEN [Suspect]
     Active Substance: NAPROXEN
     Indication: Product used for unknown indication
     Dosage: 1000 MG, QD
     Route: 065
  67. NAPROXEN SODIUM [Suspect]
     Active Substance: NAPROXEN SODIUM
     Indication: Rheumatoid arthritis
     Route: 065
  68. OXYCODONE [Suspect]
     Active Substance: OXYCODONE
     Indication: Product used for unknown indication
     Route: 065
  69. OXYCODONE TEREPHTHALATE [Suspect]
     Active Substance: OXYCODONE TEREPHTHALATE
     Indication: Product used for unknown indication
     Route: 065
  70. PANTOPRAZOLE [Suspect]
     Active Substance: PANTOPRAZOLE
     Indication: Product used for unknown indication
     Route: 065
  71. PANTOPRAZOLE SODIUM [Suspect]
     Active Substance: PANTOPRAZOLE SODIUM
     Indication: Product used for unknown indication
     Route: 065
  72. PANTOPRAZOLE SODIUM [Suspect]
     Active Substance: PANTOPRAZOLE SODIUM
     Route: 065
  73. PANTOPRAZOLE SODIUM [Suspect]
     Active Substance: PANTOPRAZOLE SODIUM
     Route: 065
  74. PANTOPRAZOLE SODIUM [Suspect]
     Active Substance: PANTOPRAZOLE SODIUM
     Route: 065
  75. PANTOPRAZOLE SODIUM [Suspect]
     Active Substance: PANTOPRAZOLE SODIUM
     Route: 065
  76. PANTOPRAZOLE SODIUM [Suspect]
     Active Substance: PANTOPRAZOLE SODIUM
     Route: 065
  77. PANTOPRAZOLE SODIUM [Suspect]
     Active Substance: PANTOPRAZOLE SODIUM
     Route: 065
  78. PANTOPRAZOLE SODIUM [Suspect]
     Active Substance: PANTOPRAZOLE SODIUM
     Route: 065
  79. PANTOPRAZOLE SODIUM [Suspect]
     Active Substance: PANTOPRAZOLE SODIUM
     Route: 065
  80. PREGABALIN [Suspect]
     Active Substance: PREGABALIN
     Indication: Product used for unknown indication
     Route: 065
  81. POVIDONE-IODINE [Suspect]
     Active Substance: POVIDONE-IODINE
     Indication: Rheumatoid arthritis
     Route: 065
  82. RITUXIMAB [Suspect]
     Active Substance: RITUXIMAB
     Indication: Rheumatoid arthritis
     Route: 065
  83. RITUXIMAB [Suspect]
     Active Substance: RITUXIMAB
     Route: 065
  84. RITUXIMAB [Suspect]
     Active Substance: RITUXIMAB
     Route: 043
  85. RITUXIMAB [Suspect]
     Active Substance: RITUXIMAB
     Route: 059
  86. RANITIDINE [Suspect]
     Active Substance: RANITIDINE
     Indication: Product used for unknown indication
     Route: 065
  87. CETIRIZINE HYDROCHLORIDE\PSEUDOEPHEDRINE HYDROCHLORIDE [Suspect]
     Active Substance: CETIRIZINE HYDROCHLORIDE\PSEUDOEPHEDRINE HYDROCHLORIDE
     Indication: Product used for unknown indication
     Route: 065
  88. REMICADE [Suspect]
     Active Substance: INFLIXIMAB
     Indication: Rheumatoid arthritis
     Route: 041
  89. DIETARY SUPPLEMENT\HERBALS [Suspect]
     Active Substance: DIETARY SUPPLEMENT\HERBALS
     Indication: Product used for unknown indication
     Route: 065
  90. SULFASALAZINE [Suspect]
     Active Substance: SULFASALAZINE
     Indication: Product used for unknown indication
     Route: 065
  91. GOLD SODIUM THIOMALATE [Suspect]
     Active Substance: GOLD SODIUM THIOMALATE
     Indication: Product used for unknown indication
     Route: 065
  92. TOFACITINIB [Suspect]
     Active Substance: TOFACITINIB
     Indication: Rheumatoid arthritis
     Dosage: 10 MG, QD
     Route: 041
  93. TOFACITINIB CITRATE [Suspect]
     Active Substance: TOFACITINIB CITRATE
     Indication: Rheumatoid arthritis
     Dosage: 0.5 MG, QD
     Route: 065
  94. TOFACITINIB CITRATE [Suspect]
     Active Substance: TOFACITINIB CITRATE
     Dosage: 10 MG, QD
     Route: 065
  95. TOPAMAX [Suspect]
     Active Substance: TOPIRAMATE
     Indication: Migraine
     Dosage: 3 MG, QD
     Route: 065
  96. TRAMADOL HCL [Suspect]
     Active Substance: TRAMADOL HYDROCHLORIDE
     Indication: Product used for unknown indication
     Route: 065
  97. TRIAMCINOLONE [Suspect]
     Active Substance: TRIAMCINOLONE
     Indication: Product used for unknown indication
     Route: 065
  98. TRIAMCINOLONE ACETONIDE [Suspect]
     Active Substance: TRIAMCINOLONE ACETONIDE
     Indication: Product used for unknown indication
     Route: 035
  99. ACETAMINOPHEN [Concomitant]
     Active Substance: ACETAMINOPHEN
     Indication: Product used for unknown indication
     Route: 065
  100. ATIVAN [Concomitant]
     Active Substance: LORAZEPAM
     Indication: Rheumatoid arthritis
     Route: 048
  101. CALCIUM [Concomitant]
     Active Substance: CALCIUM
     Indication: Product used for unknown indication
     Route: 048
  102. CALCIUM GLUBIONATE [Concomitant]
     Active Substance: CALCIUM GLUBIONATE
     Indication: Product used for unknown indication
     Route: 065
  103. CYANOCOBALAMIN [Concomitant]
     Active Substance: CYANOCOBALAMIN
     Indication: Product used for unknown indication
     Route: 065
  104. GLUCOSAMINE [Concomitant]
     Active Substance: GLUCOSAMINE
     Indication: Product used for unknown indication
     Route: 065
  105. LANSOPRAZOLE [Concomitant]
     Active Substance: LANSOPRAZOLE
     Indication: Product used for unknown indication
     Route: 065
  106. LISINOPRIL [Concomitant]
     Active Substance: LISINOPRIL
     Indication: Product used for unknown indication
     Route: 065
  107. PREDNISOLONE [Concomitant]
     Active Substance: PREDNISOLONE
     Indication: Product used for unknown indication
     Dosage: 1,DF, 1 DOSAGE FORM, QD
     Route: 065
  108. QUETIAPINE FUMARATE [Concomitant]
     Active Substance: QUETIAPINE FUMARATE
     Indication: Product used for unknown indication
     Route: 065
  109. RISEDRONATE SODIUM [Concomitant]
     Active Substance: RISEDRONATE SODIUM
     Indication: Product used for unknown indication
     Route: 058
  110. SULFASALAZINE [Concomitant]
     Active Substance: SULFASALAZINE
     Indication: Product used for unknown indication
     Route: 048
  111. FISH OIL [Concomitant]
     Active Substance: FISH OIL
     Indication: Product used for unknown indication
     Route: 065

REACTIONS (51)
  - Osteoarthritis [Fatal]
  - Night sweats [Fatal]
  - Pain [Fatal]
  - Paraesthesia [Fatal]
  - Peripheral swelling [Fatal]
  - Swelling [Fatal]
  - Peripheral venous disease [Fatal]
  - Live birth [Fatal]
  - Psoriatic arthropathy [Fatal]
  - Rheumatoid arthritis [Fatal]
  - Stomatitis [Fatal]
  - Weight increased [Fatal]
  - Vomiting [Fatal]
  - Synovitis [Fatal]
  - Systemic lupus erythematosus [Fatal]
  - Drug ineffective [Fatal]
  - Product use in unapproved indication [Fatal]
  - Drug intolerance [Fatal]
  - Taste disorder [Fatal]
  - Urticaria [Fatal]
  - Rash [Fatal]
  - No adverse event [Fatal]
  - Oedema [Fatal]
  - Discomfort [Fatal]
  - Liver injury [Fatal]
  - Condition aggravated [Fatal]
  - Fatigue [Fatal]
  - Adverse event [Fatal]
  - Adverse drug reaction [Fatal]
  - Musculoskeletal stiffness [Fatal]
  - Abdominal pain [Fatal]
  - Malaise [Fatal]
  - Myositis [Fatal]
  - Migraine [Fatal]
  - Off label use [Fatal]
  - Neck pain [Fatal]
  - Oedema peripheral [Not Recovered/Not Resolved]
  - Onychomadesis [Fatal]
  - Pain in extremity [Fatal]
  - Pemphigus [Fatal]
  - Rheumatic fever [Fatal]
  - Wound [Fatal]
  - Pericarditis [Fatal]
  - Wheezing [Fatal]
  - Muscular weakness [Fatal]
  - Sleep disorder [Fatal]
  - Type 2 diabetes mellitus [Fatal]
  - Lower respiratory tract infection [Fatal]
  - Pneumonia [Fatal]
  - Therapeutic product effect incomplete [Fatal]
  - Product use issue [Fatal]
